FAERS Safety Report 25104833 (Version 1)
Quarter: 2025Q1

REPORT INFORMATION
  Report Type: Spontaneous
  Country: US (occurrence: None)
  Receive Date: 20250320
  Receipt Date: 20250320
  Transmission Date: 20250409
  Serious: Yes (Hospitalization)
  Sender: FDA-CTU
  Company Number: None

PATIENT
  Age: 71 Year
  Sex: Female

DRUGS (16)
  1. CAPECITABINE [Suspect]
     Active Substance: CAPECITABINE
     Indication: Colorectal cancer
     Route: 048
     Dates: start: 20250123, end: 20250214
  2. OXYCODONE [Concomitant]
     Active Substance: OXYCODONE
  3. LISINOPRIL [Concomitant]
     Active Substance: LISINOPRIL
  4. DOXAZOSIN [Concomitant]
     Active Substance: DOXAZOSIN MESYLATE
  5. POTASSIUM CHLORIDE [Concomitant]
     Active Substance: POTASSIUM CHLORIDE
  6. METFORMIN [Concomitant]
     Active Substance: METFORMIN HYDROCHLORIDE
  7. ATORVASTATIN [Concomitant]
     Active Substance: ATORVASTATIN
  8. ELIQUIS [Concomitant]
     Active Substance: APIXABAN
  9. CARVEDILOL [Concomitant]
     Active Substance: CARVEDILOL
  10. DILTIAZEM [Concomitant]
     Active Substance: DILTIAZEM
  11. FUROSEMIDE [Concomitant]
     Active Substance: FUROSEMIDE
  12. NYSTATIN [Concomitant]
     Active Substance: NYSTATIN
  13. lidocaine viscous hcl 2% soln [Concomitant]
  14. M-DRYL [Concomitant]
     Active Substance: DIPHENHYDRAMINE HYDROCHLORIDE
  15. liquid allergy relief [Concomitant]
  16. geri-lanta [Concomitant]

REACTIONS (2)
  - Dehydration [None]
  - Fall [None]

NARRATIVE: CASE EVENT DATE: 20250214
